FAERS Safety Report 24604144 (Version 1)
Quarter: 2024Q4

REPORT INFORMATION
  Report Type: Spontaneous
  Country: US (occurrence: US)
  Receive Date: 20241111
  Receipt Date: 20241111
  Transmission Date: 20250115
  Serious: No
  Sender: BAYER HEALTHCARE PHARMACEUTICALS INC.
  Company Number: US-BAYER-2024A158382

PATIENT
  Age: 39 Year
  Sex: Female

DRUGS (11)
  1. MIRENA [Suspect]
     Active Substance: LEVONORGESTREL
     Indication: Peripheral nerve lesion
     Dosage: 20?G/DAY
     Route: 015
  2. ARIPIPRAZOLE [Concomitant]
     Active Substance: ARIPIPRAZOLE
     Dosage: 2 MG
     Route: 048
  3. CLINDAMYCIN [Concomitant]
     Active Substance: CLINDAMYCIN
  4. DOXYCYCLINE HYCLATE [Concomitant]
     Active Substance: DOXYCYCLINE HYCLATE
     Dosage: 100 MG
     Route: 048
  5. HYDROCORTISONE [Concomitant]
     Active Substance: HYDROCORTISONE
  6. PRAZOSIN HYDROCHLORIDE [Concomitant]
     Active Substance: PRAZOSIN HYDROCHLORIDE
     Dosage: 5 MG
     Route: 048
  7. SERTRALINE HYDROCHLORIDE [Concomitant]
     Active Substance: SERTRALINE HYDROCHLORIDE
     Dosage: 100 MG
     Route: 048
  8. SULFAMETHOXAZOLE [Concomitant]
     Active Substance: SULFAMETHOXAZOLE
     Route: 048
  9. ZOLPIDEM TARTRATE [Concomitant]
     Active Substance: ZOLPIDEM TARTRATE
     Dosage: 5 MG
     Route: 048
  10. AZITHROMYCIN [Concomitant]
     Active Substance: AZITHROMYCIN
  11. KETOCONAZOLE [Concomitant]
     Active Substance: KETOCONAZOLE

REACTIONS (2)
  - Adverse event [Not Recovered/Not Resolved]
  - Product use in unapproved indication [None]
